FAERS Safety Report 8053241-9 (Version None)
Quarter: 2012Q1

REPORT INFORMATION
  Report Type: 
  Country: None (occurrence: None)
  Receive Date: 20120118
  Receipt Date: 20120110
  Transmission Date: 20120608
  Serious: Yes (Hospitalization)
  Sender: FDA-Public Use
  Company Number: US-BAYER-2011-037957

PATIENT
  Age: 29 Year
  Sex: Female
  Weight: 76.644 kg

DRUGS (4)
  1. MULTI-VITAMIN [Concomitant]
  2. YAZ [Suspect]
     Indication: CONTRACEPTION
     Dosage: UNK
     Dates: start: 20080701, end: 20081101
  3. YASMIN [Suspect]
     Indication: CONTRACEPTION
     Dosage: UNK
     Dates: start: 20081101, end: 20090601
  4. FLAGYL [Concomitant]

REACTIONS (6)
  - INJURY [None]
  - EMOTIONAL DISTRESS [None]
  - CHOLECYSTITIS CHRONIC [None]
  - GALLBLADDER DISORDER [None]
  - ANXIETY [None]
  - PAIN [None]
